FAERS Safety Report 4847325-3 (Version None)
Quarter: 2005Q4

REPORT INFORMATION
  Report Type: 
  Country: None (occurrence: None)
  Receive Date: 20051207
  Receipt Date: 20051121
  Transmission Date: 20060501
  Serious: Yes (Death)
  Sender: FDA-Public Use
  Company Number: 2005AC01856

PATIENT
  Age: 44 Year
  Sex: Male

DRUGS (8)
  1. PROPOFOL [Suspect]
     Indication: GENERAL ANAESTHESIA
  2. SUCCINYLCHOLINE CHLORIDE [Concomitant]
     Indication: GENERAL ANAESTHESIA
  3. ESMERON [Concomitant]
     Indication: GENERAL ANAESTHESIA
  4. FENTANYL [Concomitant]
     Indication: GENERAL ANAESTHESIA
  5. PIPERACILLIN [Concomitant]
     Indication: ANTIBIOTIC PROPHYLAXIS
  6. METRONIDAZOLE [Concomitant]
     Indication: ANTIBIOTIC PROPHYLAXIS
  7. FUROSEMIDE [Concomitant]
     Indication: URINE FLOW DECREASED
     Dosage: GIVEN TWICE
  8. SHORT ACTING INSULIN [Concomitant]
     Indication: DIABETES MELLITUS

REACTIONS (12)
  - ARRHYTHMIA [None]
  - ARTHRALGIA [None]
  - BLOOD POTASSIUM INCREASED [None]
  - BUTTOCK PAIN [None]
  - CARDIAC ARREST [None]
  - CRUSH SYNDROME [None]
  - DIALYSIS [None]
  - POST PROCEDURAL COMPLICATION [None]
  - RENAL FAILURE ACUTE [None]
  - RENAL NECROSIS [None]
  - RHABDOMYOLYSIS [None]
  - SEPSIS [None]
